FAERS Safety Report 13024169 (Version 2)
Quarter: 2017Q1

REPORT INFORMATION
  Report Type: Report from Study
  Country: None (occurrence: NL)
  Receive Date: 20161213
  Receipt Date: 20170105
  Transmission Date: 20170428
  Serious: Yes (Other)
  Sender: FDA-Public Use
  Company Number: NL-ABBVIE-16P-114-1807258-00

PATIENT
  Age: 38 Year
  Sex: Female
  Weight: 69 kg

DRUGS (2)
  1. ANASTROZOL [Concomitant]
     Active Substance: ANASTROZOLE
     Indication: BREAST CANCER
     Route: 048
     Dates: start: 20161201
  2. LUCRIN DEPOT [Suspect]
     Active Substance: LEUPROLIDE ACETATE
     Indication: BREAST CANCER
     Route: 050
     Dates: start: 20141119

REACTIONS (3)
  - Fatigue [Recovering/Resolving]
  - Inflammation of wound [Recovering/Resolving]
  - Abdominal wall operation [Unknown]

NARRATIVE: CASE EVENT DATE: 201610
